FAERS Safety Report 12601511 (Version 1)
Quarter: 2016Q3

REPORT INFORMATION
  Report Type: Spontaneous
  Country: US (occurrence: None)
  Receive Date: 20160727
  Receipt Date: 20160727
  Transmission Date: 20161109
  Serious: Yes (Other)
  Sender: FDA-Public Use
  Company Number: None

PATIENT
  Sex: Male

DRUGS (1)
  1. NIFEDICAL XL [Suspect]
     Active Substance: NIFEDIPINE
     Route: 048
     Dates: start: 20160531, end: 20160710

REACTIONS (8)
  - Hyperhidrosis [None]
  - Myasthenia gravis crisis [None]
  - Dyspnoea [None]
  - Speech disorder [None]
  - Movement disorder [None]
  - Muscular weakness [None]
  - Feeling abnormal [None]
  - Dysphagia [None]
